FAERS Safety Report 9374757 (Version 1)
Quarter: 2013Q2

REPORT INFORMATION
  Report Type: Spontaneous
  Country: JP (occurrence: JP)
  Receive Date: 20130628
  Receipt Date: 20130628
  Transmission Date: 20140414
  Serious: Yes (Other)
  Sender: FDA-Public Use
  Company Number: JP-PFIZER INC-2013190258

PATIENT
  Sex: 0

DRUGS (1)
  1. ALDACTONE A [Suspect]
     Route: 048

REACTIONS (4)
  - Depressed level of consciousness [Unknown]
  - Dizziness [Unknown]
  - Dizziness postural [Unknown]
  - Disorientation [Unknown]
